FAERS Safety Report 5707716-5 (Version None)
Quarter: 2008Q2

REPORT INFORMATION
  Report Type: 
  Country: None (occurrence: None)
  Receive Date: 20080417
  Receipt Date: 20080407
  Transmission Date: 20081010
  Serious: Yes (Death)
  Sender: FDA-Public Use
  Company Number: US-SP-2008-01051

PATIENT
  Age: 49 Year
  Sex: Male

DRUGS (1)
  1. BOTULISM AB [Suspect]
     Indication: BOTULISM
     Route: 065
     Dates: start: 20030207

REACTIONS (2)
  - ASPIRATION [None]
  - DRUG ABUSE [None]
